FAERS Safety Report 16578730 (Version 2)
Quarter: 2019Q3

REPORT INFORMATION
  Report Type: Spontaneous
  Country: US (occurrence: US)
  Receive Date: 20190716
  Receipt Date: 20190805
  Transmission Date: 20191004
  Serious: No
  Sender: FDA-Public Use
  Company Number: US-BAYER-2019-131438

PATIENT
  Age: 19 Year
  Sex: Female
  Weight: 59.41 kg

DRUGS (4)
  1. ANTISEPTIC SOLUTION [Concomitant]
     Dosage: UNK UNK, ONCE
     Route: 061
     Dates: start: 20190710, end: 20190710
  2. KYLEENA [Suspect]
     Active Substance: LEVONORGESTREL
     Indication: CONTRACEPTION
     Dosage: 17.5 MCG/24HR, CONT
     Route: 015
     Dates: start: 20190710
  3. IBUPROFEN. [Concomitant]
     Active Substance: IBUPROFEN
     Dosage: 400 ML, ONCE
     Dates: start: 20190710, end: 20190710
  4. LO LOESTRIN FE [Concomitant]
     Active Substance: ETHINYL ESTRADIOL\NORETHINDRONE ACETATE
     Dosage: UNK UNK, QD
     Route: 048

REACTIONS (7)
  - Presyncope [Recovered/Resolved]
  - Procedural nausea [Recovered/Resolved]
  - Procedural pain [None]
  - Pallor [None]
  - Vomiting [None]
  - Blood pressure decreased [None]
  - Complication of device insertion [Recovered/Resolved]

NARRATIVE: CASE EVENT DATE: 20190710
